FAERS Safety Report 4272493-4 (Version None)
Quarter: 2004Q1

REPORT INFORMATION
  Report Type: 
  Country: None (occurrence: None)
  Receive Date: 20040115
  Receipt Date: 20040105
  Transmission Date: 20041129
  Serious: Yes (Hospitalization)
  Sender: FDA-Public Use
  Company Number: WAES 0401USA00125

PATIENT
  Age: 5 Year
  Sex: Female

DRUGS (4)
  1. ALBUTEROL [Concomitant]
  2. MOTRIN [Concomitant]
  3. SINGULAIR [Suspect]
     Route: 048
     Dates: end: 20031101
  4. SINGULAIR [Suspect]
     Route: 048
     Dates: start: 20031119, end: 20040102

REACTIONS (3)
  - CONVULSION [None]
  - PRESCRIBED OVERDOSE [None]
  - SLEEP TERROR [None]
